FAERS Safety Report 23522430 (Version 2)
Quarter: 2024Q2

REPORT INFORMATION
  Report Type: Spontaneous
  Country: US (occurrence: US)
  Receive Date: 20240214
  Receipt Date: 20240402
  Transmission Date: 20240716
  Serious: Yes (Other)
  Sender: FDA-Public Use
  Company Number: US-TAKEDA-2024TUS014039

PATIENT
  Age: 23 Year
  Sex: Female
  Weight: 135 kg

DRUGS (2)
  1. TRINTELLIX [Suspect]
     Active Substance: VORTIOXETINE HYDROBROMIDE
     Indication: Major depression
     Dosage: 5 MILLIGRAM, QD
     Route: 048
     Dates: start: 20240203, end: 20240205
  2. TRINTELLIX [Suspect]
     Active Substance: VORTIOXETINE HYDROBROMIDE
     Dosage: 5 MILLIGRAM, BID
     Route: 065

REACTIONS (1)
  - Intrusive thoughts [Recovered/Resolved]

NARRATIVE: CASE EVENT DATE: 20240204
